FAERS Safety Report 18071298 (Version 1)
Quarter: 2020Q3

REPORT INFORMATION
  Report Type: Spontaneous
  Country: US (occurrence: US)
  Receive Date: 20200723
  Receipt Date: 20200723
  Transmission Date: 20201103
  Serious: Yes (Disabling, Other)
  Sender: FDA-Public Use
  Company Number: None

PATIENT
  Age: 44 Year
  Sex: Female
  Weight: 65.77 kg

DRUGS (11)
  1. LIFETOGO HAND SANITIZER [Suspect]
     Active Substance: ALCOHOL
  2. ATIVAN [Concomitant]
     Active Substance: LORAZEPAM
  3. CLARITIN [Concomitant]
     Active Substance: LORATADINE
  4. SAFE AND SOFT ANTIBACTERIAL HAND FRESH SCENT [Suspect]
     Active Substance: BENZALKONIUM CHLORIDE
  5. BIO TECH ADVANCED HAND SANITIZER [Suspect]
     Active Substance: ISOPROPYL ALCOHOL
  6. ZOLOFT [Concomitant]
     Active Substance: SERTRALINE HYDROCHLORIDE
  7. TRASADONE [Concomitant]
  8. WELLBUTRAIN [Concomitant]
  9. VITAMIN B12 [Concomitant]
     Active Substance: CYANOCOBALAMIN
  10. GERMS BE GONE HAND SANITIZER [Suspect]
     Active Substance: ALCOHOL
  11. ALBUTEROL INHALER [Concomitant]
     Active Substance: ALBUTEROL

REACTIONS (13)
  - Fatigue [None]
  - Visual impairment [None]
  - Syncope [None]
  - Head titubation [None]
  - Fall [None]
  - Balance disorder [None]
  - Loss of consciousness [None]
  - Amnesia [None]
  - Loss of personal independence in daily activities [None]
  - Tremor [None]
  - Headache [None]
  - Sensory loss [None]
  - Listless [None]
